FAERS Safety Report 7464406-9 (Version None)
Quarter: 2011Q2

REPORT INFORMATION
  Report Type: 
  Country: None (occurrence: None)
  Receive Date: 20110509
  Receipt Date: 20110503
  Transmission Date: 20111010
  Serious: No
  Sender: FDA-Public Use
  Company Number: US-PFIZER INC-2011095174

PATIENT
  Sex: Female
  Weight: 99.773 kg

DRUGS (10)
  1. SIMVASTATIN [Concomitant]
     Dosage: 20 MG, 1X/DAY
  2. CENTRUM SILVER [Concomitant]
     Dosage: ONE TABLET ONCE
  3. OSTEO BI-FLEX [Concomitant]
  4. CO-Q-10 [Concomitant]
     Dosage: 300 MG, 1X/DAY
  5. DEPAKOTE [Concomitant]
     Dosage: 500 MG, 2X/DAY
     Route: 048
  6. ACETYLSALICYLIC ACID [Concomitant]
     Dosage: 81 MG
  7. LOXIN [Concomitant]
     Dosage: 5 LOXIN 2 CAPSULES ONCE DAILY
  8. PENICILLIN G PROCAINE [Suspect]
     Dosage: UNK
  9. CALCIUM WITH VITAMIN D [Concomitant]
     Dosage: 500 MG, 1X/DAY
  10. DITROPAN [Concomitant]
     Indication: BLADDER DISORDER
     Dosage: 10 MG, 1X/DAY AS NEEDED

REACTIONS (1)
  - HYPERSENSITIVITY [None]
